FAERS Safety Report 7658611-6 (Version None)
Quarter: 2011Q3

REPORT INFORMATION
  Report Type: 
  Country: None (occurrence: None)
  Receive Date: 20110804
  Receipt Date: 20110804
  Transmission Date: 20111222
  Serious: Yes (Hospitalization)
  Sender: FDA-Public Use
  Company Number: None

PATIENT
  Sex: Female
  Weight: 72.5755 kg

DRUGS (1)
  1. METOPROLOL TARTRATE [Suspect]
     Indication: BLOOD PRESSURE
     Dosage: 25 MG TWICE A DAY 1 TABLET TWICE DAILY
     Dates: start: 20110501

REACTIONS (5)
  - MENTAL STATUS CHANGES [None]
  - MOOD ALTERED [None]
  - HALLUCINATION [None]
  - DEPRESSION [None]
  - CONFUSIONAL STATE [None]
